FAERS Safety Report 8510918-6 (Version None)
Quarter: 2012Q3

REPORT INFORMATION
  Report Type: 
  Country: None (occurrence: None)
  Receive Date: 20120716
  Receipt Date: 20120705
  Transmission Date: 20120928
  Serious: Yes (Hospitalization, Disabling, Other)
  Sender: FDA-Public Use
  Company Number: US-CELGENEUS-163-21880-12050816

PATIENT
  Sex: Female

DRUGS (1)
  1. REVLIMID [Suspect]
     Indication: MULTIPLE MYELOMA
     Dosage: 10 MILLIGRAM
     Route: 048
     Dates: start: 20100901, end: 20120401

REACTIONS (3)
  - OSTEOMYELITIS [None]
  - ANAPLASTIC LARGE CELL LYMPHOMA T- AND NULL-CELL TYPES [None]
  - NERVE INJURY [None]
